FAERS Safety Report 12336487 (Version 1)
Quarter: 2016Q2

REPORT INFORMATION
  Report Type: Not Available
  Country: IT (occurrence: IT)
  Receive Date: 20160505
  Receipt Date: 20160505
  Transmission Date: 20160815
  Serious: Yes (Hospitalization, Other)
  Sender: FDA-Public Use
  Company Number: IT-MUNDIPHARMA DS AND PHARMACOVIGILANCE-GBR-2016-0035913

PATIENT
  Age: 59 Year
  Sex: Female

DRUGS (8)
  1. ANAFRANIL [Suspect]
     Active Substance: CLOMIPRAMINE HYDROCHLORIDE
     Indication: INTENTIONAL SELF-INJURY
     Dosage: 3 TABLET, TOTAL
     Route: 048
  2. ANAFRANIL [Suspect]
     Active Substance: CLOMIPRAMINE HYDROCHLORIDE
     Indication: PAIN
  3. MINIAS [Suspect]
     Active Substance: LORMETAZEPAM
     Indication: INTENTIONAL SELF-INJURY
     Dosage: 20 ML, TOTAL
     Route: 048
  4. TARGIN COMPRESSA A RILASCIO PROLUNGATO CONTIENE 40MG/20MG [Suspect]
     Active Substance: NALOXONE HYDROCHLORIDE\OXYCODONE HYDROCHLORIDE
     Indication: INTENTIONAL SELF-INJURY
     Dosage: 14 TABLET, TOTAL
     Route: 048
  5. CONTRAMAL [Suspect]
     Active Substance: TRAMADOL HYDROCHLORIDE
     Indication: PAIN
  6. MINIAS [Suspect]
     Active Substance: LORMETAZEPAM
     Indication: PAIN
  7. TARGIN COMPRESSA A RILASCIO PROLUNGATO CONTIENE 40MG/20MG [Suspect]
     Active Substance: NALOXONE HYDROCHLORIDE\OXYCODONE HYDROCHLORIDE
     Indication: PAIN
  8. CONTRAMAL [Suspect]
     Active Substance: TRAMADOL HYDROCHLORIDE
     Indication: INTENTIONAL SELF-INJURY
     Dosage: 10 TABLET, TOTAL
     Route: 048

REACTIONS (3)
  - Drug abuse [Recovering/Resolving]
  - Intentional self-injury [Recovering/Resolving]
  - Sopor [Recovering/Resolving]

NARRATIVE: CASE EVENT DATE: 20160420
